FAERS Safety Report 10450014 (Version 2)
Quarter: 2014Q4

REPORT INFORMATION
  Report Type: Spontaneous
  Country: US (occurrence: US)
  Receive Date: 20140912
  Receipt Date: 20141016
  Transmission Date: 20150528
  Serious: Yes (Other)
  Sender: FDA-Public Use
  Company Number: US-BAYER-2014-136389

PATIENT
  Age: 27 Year
  Sex: Female
  Weight: 87.53 kg

DRUGS (1)
  1. MIRENA [Suspect]
     Active Substance: LEVONORGESTREL
     Indication: CONTRACEPTION
     Dosage: 20 MCG/24HR, CONT
     Route: 015
     Dates: start: 20140813, end: 20140831

REACTIONS (2)
  - Genital haemorrhage [Recovered/Resolved]
  - Device expulsion [None]

NARRATIVE: CASE EVENT DATE: 20140831
